FAERS Safety Report 20939617 (Version 1)
Quarter: 2022Q2

REPORT INFORMATION
  Report Type: Spontaneous
  Country: US (occurrence: None)
  Receive Date: 20220609
  Receipt Date: 20220609
  Transmission Date: 20220721
  Serious: Yes (Other)
  Sender: FDA-Public Use
  Company Number: None

PATIENT
  Sex: Male
  Weight: 56.7 kg

DRUGS (4)
  1. PREGABALIN [Suspect]
     Active Substance: PREGABALIN
     Indication: Spinal stenosis
     Dosage: OTHER QUANTITY : ONE;?FREQUENCY : TWICE A DAY;?
     Route: 048
     Dates: start: 20210707, end: 20220517
  2. ALENDRONATE [Concomitant]
     Active Substance: ALENDRONATE SODIUM
  3. CYANOCOBALAMIN [Concomitant]
     Active Substance: CYANOCOBALAMIN
  4. Multiple Vits [Concomitant]

REACTIONS (7)
  - Hypoacusis [None]
  - Tinnitus [None]
  - Tinnitus [None]
  - Irritability [None]
  - Tremor [None]
  - Agitation [None]
  - Therapy change [None]
